FAERS Safety Report 9027724 (Version 1)
Quarter: 2013Q1

REPORT INFORMATION
  Report Type: Spontaneous
  Country: US (occurrence: US)
  Receive Date: 20130123
  Receipt Date: 20130123
  Transmission Date: 20140127
  Serious: Yes (Hospitalization)
  Sender: FDA-Public Use
  Company Number: US-UCBSA-075869

PATIENT
  Sex: Male
  Weight: 84.82 kg

DRUGS (3)
  1. CIMZIA [Suspect]
     Indication: RHEUMATOID ARTHRITIS
     Dosage: 2 SYRINGES 200 MG EACH ; AT WEEKS 0,2 AND 4
     Route: 058
     Dates: start: 201208, end: 2012
  2. METHOTREXATE [Concomitant]
     Dosage: UNKNOWN DOSE
  3. PREDNISONE [Concomitant]
     Dosage: UNKNOWN DOSE

REACTIONS (1)
  - Lung infection [Recovered/Resolved]
